FAERS Safety Report 21138177 (Version 1)
Quarter: 2022Q3

REPORT INFORMATION
  Report Type: Spontaneous
  Country: CN (occurrence: CN)
  Receive Date: 20220727
  Receipt Date: 20220727
  Transmission Date: 20221027
  Serious: Yes (Death, Life-Threatening)
  Sender: FDA-Public Use
  Company Number: CN-PFIZER INC-PV202200026753

PATIENT
  Age: 8 Year
  Sex: Female

DRUGS (18)
  1. METHYLPREDNISOLONE SODIUM SUCCINATE [Suspect]
     Active Substance: METHYLPREDNISOLONE SODIUM SUCCINATE
     Indication: Interstitial lung disease
     Dosage: 1 MG/KG, DAILY
     Route: 042
  2. METHYLPREDNISOLONE SODIUM SUCCINATE [Suspect]
     Active Substance: METHYLPREDNISOLONE SODIUM SUCCINATE
     Indication: Agranulocytosis
     Dosage: 10 MG/KG, DAILY
     Route: 042
  3. METHYLPREDNISOLONE SODIUM SUCCINATE [Suspect]
     Active Substance: METHYLPREDNISOLONE SODIUM SUCCINATE
     Indication: Pneumocystis jirovecii pneumonia
  4. LINEZOLID [Suspect]
     Active Substance: LINEZOLID
     Indication: Pneumonia
     Dosage: UNK
  5. LINEZOLID [Suspect]
     Active Substance: LINEZOLID
     Indication: Neutrophil count decreased
  6. LINEZOLID [Suspect]
     Active Substance: LINEZOLID
     Indication: Pneumocystis jirovecii infection
  7. MEROPENEM [Suspect]
     Active Substance: MEROPENEM
     Indication: Neutropenia
     Dosage: UNK
  8. MEROPENEM [Suspect]
     Active Substance: MEROPENEM
     Indication: Pyrexia
  9. MEROPENEM [Suspect]
     Active Substance: MEROPENEM
     Indication: Cough
  10. MEROPENEM [Suspect]
     Active Substance: MEROPENEM
     Indication: Pharyngeal disorder
  11. PIRFENIDONE [Suspect]
     Active Substance: PIRFENIDONE
     Indication: Interstitial lung disease
     Dosage: UNK
  12. ACETYLCYSTEINE [Suspect]
     Active Substance: ACETYLCYSTEINE
     Indication: Interstitial lung disease
     Dosage: UNK
  13. GRANULOCYTE COLONY-STIMULATING FACTOR NOS [Concomitant]
     Active Substance: GRANULOCYTE COLONY-STIMULATING FACTOR NOS
     Indication: Prophylaxis
     Dosage: 5 UG/KG, DAILY
  14. AMIKACIN [Concomitant]
     Active Substance: AMIKACIN
     Dosage: UNK
  15. TIGECYCLINE [Concomitant]
     Active Substance: TIGECYCLINE
     Dosage: UNK
  16. TEICOPLANIN [Concomitant]
     Active Substance: TEICOPLANIN
     Indication: Granulocytosis
     Dosage: UNK
  17. SULFAMETHOXAZOLE\TRIMETHOPRIM [Concomitant]
     Active Substance: SULFAMETHOXAZOLE\TRIMETHOPRIM
     Indication: Agranulocytosis
     Dosage: UNK
  18. CASPOFUNGIN [Concomitant]
     Active Substance: CASPOFUNGIN
     Indication: Agranulocytosis
     Dosage: UNK

REACTIONS (3)
  - Drug ineffective [Fatal]
  - Off label use [Unknown]
  - Drug ineffective for unapproved indication [Unknown]
